FAERS Safety Report 15411704 (Version 1)
Quarter: 2018Q3

REPORT INFORMATION
  Report Type: Spontaneous
  Country: US (occurrence: US)
  Receive Date: 20180921
  Receipt Date: 20180921
  Transmission Date: 20181010
  Serious: Yes (Other)
  Sender: FDA-Public Use
  Company Number: US-ELI_LILLY_AND_COMPANY-US201809008552

PATIENT
  Age: 83 Year
  Sex: Female

DRUGS (1)
  1. FORTEO [Suspect]
     Active Substance: TERIPARATIDE
     Indication: OSTEOPOROSIS
     Dosage: UNK, UNKNOWN
     Route: 065
     Dates: start: 2017

REACTIONS (10)
  - Loss of consciousness [Unknown]
  - Fall [Unknown]
  - Syncope [Unknown]
  - Loose tooth [Unknown]
  - Tooth fracture [Unknown]
  - Bone disorder [Unknown]
  - Head injury [Unknown]
  - Laceration [Unknown]
  - Wound haemorrhage [Unknown]
  - Wound infection [Unknown]

NARRATIVE: CASE EVENT DATE: 20170612
